FAERS Safety Report 8506095 (Version 2)
Quarter: 2012Q4

REPORT INFORMATION
  Report Type: Spontaneous
  Country: US (occurrence: None)
  Receive Date: 20120405
  Receipt Date: 20120823
  Transmission Date: 20130627
  Serious: Yes (Life-Threatening)
  Sender: FDA-Public Use
  Company Number: MC201200188

PATIENT
  Sex: Male

DRUGS (4)
  1. ANGIOMAX [Suspect]
     Indication: PERCUTANEOUS CORONARY INTERVENTION
     Dosage: bolus
     Route: 042
     Dates: start: 20120323, end: 20120323
  2. ANGIOMAX [Suspect]
     Indication: PERCUTANEOUS CORONARY INTERVENTION
     Dosage: 1.75 mg/kg/hr
     Route: 042
     Dates: start: 20120323, end: 20120323
  3. PLAVIX [Concomitant]
  4. ASPIRIN [Suspect]
     Dosage: Loading dose at diagnostic cardiac catheterization

REACTIONS (3)
  - Coronary artery dissection [None]
  - International normalised ratio increased [None]
  - Activated partial thromboplastin time prolonged [None]
